FAERS Safety Report 10359077 (Version 1)
Quarter: 2014Q3

REPORT INFORMATION
  Report Type: Spontaneous
  Country: GR (occurrence: GR)
  Receive Date: 20140804
  Receipt Date: 20140804
  Transmission Date: 20150326
  Serious: Yes (Other)
  Sender: FDA-Public Use
  Company Number: GR-ROCHE-1441726

PATIENT
  Age: 65 Year
  Sex: Female

DRUGS (8)
  1. LONALGAL [Concomitant]
     Indication: ARTHRALGIA
     Route: 065
     Dates: start: 201401
  2. MABTHERA [Suspect]
     Active Substance: RITUXIMAB
     Dosage: 2X500MG
     Route: 042
     Dates: start: 20140117
  3. THYROHORMONE [Concomitant]
     Indication: HYPOTHYROIDISM
  4. COVERSYL [Concomitant]
     Active Substance: PERINDOPRIL
     Indication: HYPERTENSION
     Route: 065
  5. CORTISONE [Suspect]
     Active Substance: CORTISONE\HYDROCORTISONE
     Indication: PRODUCT USED FOR UNKNOWN INDICATION
     Route: 065
  6. MABTHERA [Suspect]
     Active Substance: RITUXIMAB
     Indication: RHEUMATOID ARTHRITIS
     Dosage: 2X500MG
     Route: 042
     Dates: start: 20140103
  7. APIDRA [Concomitant]
     Active Substance: INSULIN GLULISINE
     Indication: DIABETES MELLITUS
  8. DEPON [Concomitant]
     Active Substance: ACETAMINOPHEN

REACTIONS (3)
  - Blood glucose increased [Recovered/Resolved]
  - Urinary tract infection [Recovered/Resolved]
  - Drug ineffective [Unknown]
